FAERS Safety Report 22298182 (Version 1)
Quarter: 2023Q2

REPORT INFORMATION
  Report Type: Spontaneous
  Country: US (occurrence: None)
  Receive Date: 20230506
  Receipt Date: 20230506
  Transmission Date: 20230722
  Serious: Yes (Hospitalization)
  Sender: FDA-Public Use
  Company Number: None

PATIENT
  Age: 64 Year
  Sex: Female

DRUGS (1)
  1. ORENCIA [Suspect]
     Active Substance: ABATACEPT
     Indication: Rheumatoid arthritis
     Dosage: 125MG WEEKLY OTHER SUBCUTANEOUS
     Route: 058
     Dates: start: 20230201

REACTIONS (2)
  - COVID-19 [None]
  - Influenza [None]

NARRATIVE: CASE EVENT DATE: 20230503
